FAERS Safety Report 9978220 (Version 1)
Quarter: 2014Q1

REPORT INFORMATION
  Report Type: Report from Study
  Country: US (occurrence: US)
  Receive Date: 20140306
  Receipt Date: 20140306
  Transmission Date: 20141002
  Serious: No
  Sender: FDA-Public Use
  Company Number: US-ABBVIE-13P-163-1172738-00

PATIENT
  Age: 59 Year
  Sex: Female

DRUGS (11)
  1. HUMIRA [Suspect]
     Indication: CROHN^S DISEASE
     Dates: start: 20130817
  2. VITAMIN D [Concomitant]
     Indication: VITAMIN D DECREASED
     Route: 048
  3. HYDROCODONE [Concomitant]
     Indication: BACK PAIN
     Dosage: EVERY 6 HOURS AS NEEDED
     Route: 048
  4. TRAMADOL [Concomitant]
     Indication: BACK PAIN
     Dosage: 1 TO 2 QID AS NEEDED
     Route: 048
  5. GABAPENTIN [Concomitant]
     Indication: HYPOAESTHESIA
     Route: 048
  6. DICYCLOMINE [Concomitant]
     Indication: CROHN^S DISEASE
     Route: 048
  7. OMEPRAZOLE [Concomitant]
     Indication: DYSPEPSIA
     Route: 048
  8. FERROUS SULFATE [Concomitant]
     Indication: ANAEMIA
     Route: 048
  9. NASONEX [Concomitant]
     Indication: SINUS CONGESTION
     Dosage: 1 SQUIRT EACH NARE PRN
     Route: 045
  10. ALBUTEROL [Concomitant]
     Indication: EMPHYSEMA
     Route: 055
  11. EYE DROP MEDICATIONS [Concomitant]
     Indication: ULCERATIVE KERATITIS
     Dosage: DAILY

REACTIONS (1)
  - Inappropriate schedule of drug administration [Not Recovered/Not Resolved]
